FAERS Safety Report 25902535 (Version 1)
Quarter: 2025Q4

REPORT INFORMATION
  Report Type: Spontaneous
  Country: US (occurrence: US)
  Receive Date: 20251009
  Receipt Date: 20251009
  Transmission Date: 20260117
  Serious: No
  Sender: ABBVIE
  Company Number: US-ABBVIE-6489561

PATIENT
  Age: 70 Year
  Sex: Male

DRUGS (1)
  1. RISANKIZUMAB [Suspect]
     Active Substance: RISANKIZUMAB
     Indication: Crohn^s disease
     Route: 042

REACTIONS (3)
  - Rash pruritic [Unknown]
  - Acne [Unknown]
  - Acne [Unknown]

NARRATIVE: CASE EVENT DATE: 20251001
